FAERS Safety Report 6899190-0 (Version None)
Quarter: 2010Q3

REPORT INFORMATION
  Report Type: 
  Country: None (occurrence: None)
  Receive Date: 20100802
  Receipt Date: 20080128
  Transmission Date: 20110219
  Serious: Yes (Other)
  Sender: FDA-Public Use
  Company Number: US-PFIZER INC-2007100672

PATIENT
  Sex: Female
  Weight: 105 kg

DRUGS (9)
  1. LYRICA [Suspect]
     Indication: FIBROMYALGIA
     Dates: start: 20071031, end: 20071121
  2. SYNTHROID [Concomitant]
  3. PLAVIX [Concomitant]
  4. CYMBALTA [Concomitant]
  5. NEXIUM [Concomitant]
  6. VALSARTAN [Concomitant]
  7. LIPITOR [Concomitant]
  8. METHADONE HCL [Concomitant]
     Dates: start: 20070718
  9. DIOVAN HCT [Concomitant]

REACTIONS (1)
  - TREMOR [None]
